FAERS Safety Report 9774440 (Version 1)
Quarter: 2013Q4

REPORT INFORMATION
  Report Type: Spontaneous
  Country: FR (occurrence: FR)
  Receive Date: 20131220
  Receipt Date: 20131220
  Transmission Date: 20140711
  Serious: Yes (Hospitalization)
  Sender: FDA-Public Use
  Company Number: FR-JNJFOC-20131209382

PATIENT
  Age: 51 Year
  Sex: Male

DRUGS (12)
  1. PREZISTA [Suspect]
     Indication: HIV TEST POSITIVE
     Dosage: IN THE EVENING
     Route: 048
  2. PREZISTA [Suspect]
     Indication: HIV TEST POSITIVE
     Route: 048
     Dates: start: 20130905, end: 20131011
  3. TRUVADA [Suspect]
     Indication: HIV TEST POSITIVE
     Route: 065
     Dates: start: 20130905, end: 20131011
  4. NORVIR [Suspect]
     Indication: HIV TEST POSITIVE
     Dosage: 1 TABLET IN THE EVENING
     Route: 065
  5. NORVIR [Suspect]
     Indication: HIV TEST POSITIVE
     Route: 065
     Dates: end: 20131011
  6. MALOCIDE [Concomitant]
     Indication: CEREBRAL TOXOPLASMOSIS
     Route: 065
     Dates: start: 20130915
  7. ADIAZINE [Concomitant]
     Indication: CEREBRAL TOXOPLASMOSIS
     Dosage: 3 TABLETS
     Route: 065
  8. LEDERFOLINE [Concomitant]
     Route: 065
  9. BACTRIM [Concomitant]
     Dosage: 400/80
     Route: 065
  10. KEPPRA [Concomitant]
     Dosage: 400/80
     Route: 065
  11. TIORFAN [Concomitant]
     Dosage: 1 SACK
     Route: 065
  12. SPASFON [Concomitant]
     Dosage: 1 SACK
     Route: 065

REACTIONS (1)
  - Hyperlactacidaemia [Recovered/Resolved]
